FAERS Safety Report 9493641 (Version 2)
Quarter: 2013Q3

REPORT INFORMATION
  Report Type: Spontaneous
  Country: PL (occurrence: PL)
  Receive Date: 20130902
  Receipt Date: 20130902
  Transmission Date: 20140515
  Serious: Yes (Hospitalization)
  Sender: FDA-Public Use
  Company Number: PL-ACTELION-A-CH2013-86574

PATIENT
  Age: 20 Year
  Sex: Male

DRUGS (9)
  1. TRACLEER [Suspect]
     Indication: PRODUCT USED FOR UNKNOWN INDICATION
     Dosage: 62.5 MG, BID
     Route: 048
     Dates: start: 20130528, end: 20130702
  2. TRACLEER [Suspect]
     Dosage: 62.5 MG, BID
     Route: 048
     Dates: start: 20121003, end: 20121210
  3. TRACLEER [Suspect]
     Dosage: 125 MG, BID
     Route: 048
     Dates: start: 20121211, end: 20130211
  4. TRACLEER [Suspect]
     Dosage: 62.5 MG, BID
     Route: 048
     Dates: start: 20130212, end: 20130311
  5. TRACLEER [Suspect]
     Dosage: 93.75 MG, BID
     Route: 048
     Dates: start: 20130312, end: 20130527
  6. EUTHYROX [Concomitant]
     Dosage: 12.5 MG, UNK
  7. ASA [Concomitant]
     Dosage: 30 MG, QD
  8. HEPATIL [Concomitant]
     Dosage: UNK, BID
     Dates: end: 20130718
  9. ESSENTIALE [Concomitant]
     Dosage: UNK UNK, BID

REACTIONS (3)
  - Liver function test abnormal [Recovered/Resolved]
  - Aspartate aminotransferase increased [Recovered/Resolved]
  - Alanine aminotransferase increased [Recovered/Resolved]
